FAERS Safety Report 7235102-8 (Version None)
Quarter: 2011Q1

REPORT INFORMATION
  Report Type: 
  Country: None (occurrence: None)
  Receive Date: 20110120
  Receipt Date: 20110106
  Transmission Date: 20110831
  Serious: No
  Sender: FDA-Public Use
  Company Number: US-B.I. PHARMACEUTICALS,INC./RIDGEFIELD-2011-BP-00797BP

PATIENT
  Age: 63 Year
  Sex: Male

DRUGS (6)
  1. TEMAZEPAM [Concomitant]
     Indication: SLEEP DISORDER
  2. ACTONEL [Concomitant]
     Indication: OSTEOPOROSIS
  3. AGGRENOX [Concomitant]
     Indication: TRANSIENT ISCHAEMIC ATTACK
  4. NEXIUM [Concomitant]
     Indication: ULCER
  5. LITHIUM CARBONATE [Concomitant]
     Indication: MOOD ALTERED
  6. MIRAPEX [Suspect]
     Indication: PARKINSON'S DISEASE
     Dosage: 1.5 MG
     Route: 048
     Dates: start: 20101201

REACTIONS (4)
  - ORAL CANDIDIASIS [None]
  - PAIN [None]
  - HALLUCINATION, VISUAL [None]
  - SUICIDAL IDEATION [None]
